FAERS Safety Report 12051250 (Version 1)
Quarter: 2016Q1

REPORT INFORMATION
  Report Type: Spontaneous
  Country: CH (occurrence: CH)
  Receive Date: 20160209
  Receipt Date: 20160209
  Transmission Date: 20160526
  Serious: Yes (Other)
  Sender: FDA-Public Use
  Company Number: PHHY2016CH012360

PATIENT
  Age: 38 Year
  Sex: Female

DRUGS (1)
  1. ACLASTA [Suspect]
     Active Substance: ZOLEDRONIC ACID
     Indication: OSTEOPOROSIS
     Dosage: UNK
     Route: 041
     Dates: start: 20160114

REACTIONS (8)
  - Movement disorder [Unknown]
  - Lymphadenopathy [Not Recovered/Not Resolved]
  - Erythema [Recovering/Resolving]
  - Incorrect route of drug administration [Unknown]
  - Swelling [Recovering/Resolving]
  - Pain in extremity [Recovering/Resolving]
  - Inflammation [Not Recovered/Not Resolved]
  - Vein rupture [Recovering/Resolving]

NARRATIVE: CASE EVENT DATE: 20160114
